FAERS Safety Report 4378624-X (Version None)
Quarter: 2004Q2

REPORT INFORMATION
  Report Type: 
  Country: None (occurrence: None)
  Receive Date: 20040610
  Receipt Date: 20040528
  Transmission Date: 20050107
  Serious: Yes (Hospitalization)
  Sender: FDA-Public Use
  Company Number: 2004AP02925

PATIENT
  Age: 72 Year
  Sex: Male
  Weight: 46 kg

DRUGS (6)
  1. TENORMIN [Suspect]
     Dosage: 25 MG DAILY PO
     Dates: start: 20040206
  2. CAMPTOSAR [Suspect]
     Indication: SMALL CELL LUNG CANCER STAGE UNSPECIFIED
     Dosage: 80 MG DAILY IVD
     Dates: start: 20040225, end: 20040225
  3. RANDA [Suspect]
     Indication: SMALL CELL LUNG CANCER STAGE UNSPECIFIED
     Dosage: 80 MG DAILY IVD
     Dates: start: 20040225, end: 20040225
  4. KYTRIL [Suspect]
     Dosage: 3 MG DAILY IVD
     Dates: start: 20040225, end: 20040226
  5. NORVASC [Suspect]
     Dosage: 5 MG DAILY PO
     Dates: start: 20040206
  6. BLOPRESS [Suspect]
     Dosage: 8 MG DAILY PO
     Dates: start: 20040206

REACTIONS (6)
  - DELIRIUM [None]
  - DEPRESSED LEVEL OF CONSCIOUSNESS [None]
  - HYPOACUSIS [None]
  - MEMORY IMPAIRMENT [None]
  - TREMOR [None]
  - URINARY INCONTINENCE [None]
